FAERS Safety Report 7997183-3 (Version None)
Quarter: 2011Q4

REPORT INFORMATION
  Report Type: 
  Country: None (occurrence: None)
  Receive Date: 20111221
  Receipt Date: 20111104
  Transmission Date: 20120403
  Serious: No
  Sender: FDA-Public Use
  Company Number: GB-SANOFI-AVENTIS-2011SA073665

PATIENT

DRUGS (1)
  1. MULTAQ [Suspect]
     Route: 065

REACTIONS (2)
  - BLOOD CREATININE INCREASED [None]
  - BRADYCARDIA [None]
